FAERS Safety Report 5755825-7 (Version None)
Quarter: 2008Q2

REPORT INFORMATION
  Report Type: 
  Country: None (occurrence: None)
  Receive Date: 20080602
  Receipt Date: 20080526
  Transmission Date: 20081010
  Serious: Yes (Hospitalization, Other)
  Sender: FDA-Public Use
  Company Number: AT-AVENTIS-200814186GDDC

PATIENT
  Age: 52 Year
  Sex: Female

DRUGS (5)
  1. ARAVA [Suspect]
     Indication: RHEUMATOID ARTHRITIS
     Route: 048
     Dates: start: 20080101
  2. PANTOPRAZOL [Concomitant]
     Route: 048
  3. XEFO [Concomitant]
     Route: 048
  4. VIT D [Concomitant]
     Dosage: DOSE: UNK
  5. KORTISON [Concomitant]
     Dosage: DOSE: UNK

REACTIONS (1)
  - PULMONARY EMBOLISM [None]
